FAERS Safety Report 25945378 (Version 1)
Quarter: 2025Q4

REPORT INFORMATION
  Report Type: Spontaneous
  Country: US (occurrence: None)
  Receive Date: 20251021
  Receipt Date: 20251021
  Transmission Date: 20260117
  Serious: Yes (Life-Threatening, Hospitalization)
  Sender: FDA-CTU
  Company Number: None

PATIENT
  Age: 16 Year
  Sex: Male
  Weight: 78.2 kg

DRUGS (1)
  1. CALASPARGASE PEGOL-MKNL [Suspect]
     Active Substance: CALASPARGASE PEGOL-MKNL
     Indication: B-cell type acute leukaemia
     Dosage: OTHER FREQUENCY : ONCE;?STRENGTH: 750UNITS/ML IU INTERNATIONAL UNIT(S)
     Route: 041
     Dates: start: 20250828, end: 20251020

REACTIONS (2)
  - Anaphylactic reaction [None]
  - Cardio-respiratory arrest [None]

NARRATIVE: CASE EVENT DATE: 20251020
